FAERS Safety Report 10511692 (Version 1)
Quarter: 2014Q3

REPORT INFORMATION
  Report Type: Spontaneous
  Country: US (occurrence: None)
  Receive Date: 20140915
  Receipt Date: 20140915
  Transmission Date: 20150326
  Serious: Yes (Hospitalization)
  Sender: FDA-Public Use
  Company Number: 2014-US-000024

PATIENT
  Age: 38 Year
  Sex: Male

DRUGS (1)
  1. XYREM [Suspect]
     Active Substance: SODIUM OXYBATE
     Indication: NARCOLEPSY
     Route: 048
     Dates: start: 201003, end: 2010

REACTIONS (5)
  - Asthenia [None]
  - Chest pain [None]
  - Fatigue [None]
  - Suicidal behaviour [None]
  - Feeling cold [None]
